FAERS Safety Report 9627905 (Version 2)
Quarter: 2013Q4

REPORT INFORMATION
  Report Type: Not Available
  Country: US (occurrence: US)
  Receive Date: 20131016
  Receipt Date: 20131016
  Transmission Date: 20140711
  Serious: Yes (Hospitalization)
  Sender: FDA-Public Use
  Company Number: US-LUNDBECK-DKLU1093012

PATIENT
  Age: 44 Year
  Sex: Female
  Weight: 64 kg

DRUGS (14)
  1. SABRIL [Suspect]
     Indication: COMPLEX PARTIAL SEIZURES
     Route: 048
     Dates: start: 20130604, end: 20130611
  2. SABRIL [Suspect]
     Indication: PARTIAL SEIZURES WITH SECONDARY GENERALISATION
     Route: 048
     Dates: start: 20130612, end: 20130618
  3. SABRIL [Suspect]
     Route: 048
     Dates: start: 20130619, end: 20130625
  4. SABRIL [Suspect]
     Route: 048
     Dates: start: 20130619, end: 20130625
  5. SABRIL [Suspect]
     Route: 048
     Dates: start: 20130626, end: 20130702
  6. SABRIL [Suspect]
     Route: 048
     Dates: start: 20130703, end: 20130711
  7. SABRIL [Suspect]
     Route: 048
     Dates: start: 20130703, end: 20130711
  8. SABRIL [Suspect]
     Route: 048
     Dates: start: 20130712, end: 20130803
  9. SABRIL [Suspect]
     Route: 048
     Dates: start: 20130804
  10. DILANTIN INFATABS [Concomitant]
     Indication: CONVULSION
     Route: 048
     Dates: start: 2011
  11. ATIVAN [Concomitant]
     Indication: CONVULSION
     Route: 048
     Dates: start: 2007
  12. DILANTIN ER [Concomitant]
     Indication: CONVULSION
     Route: 048
     Dates: start: 2002
  13. LATUDA [Concomitant]
     Indication: DEPRESSION
     Route: 048
     Dates: start: 2011
  14. LATUDA [Concomitant]
     Indication: ANXIETY

REACTIONS (1)
  - Convulsion [Recovered/Resolved]
